FAERS Safety Report 5320276-6 (Version None)
Quarter: 2007Q2

REPORT INFORMATION
  Report Type: 
  Country: None (occurrence: None)
  Receive Date: 20070503
  Receipt Date: 20070503
  Transmission Date: 20071010
  Serious: Yes (Hospitalization)
  Sender: FDA-Public Use
  Company Number: None

PATIENT
  Sex: Male
  Weight: 68 kg

DRUGS (1)
  1. FLUOROURACIL [Suspect]
     Dosage: 12460 MG

REACTIONS (4)
  - DRUG TOXICITY [None]
  - HYPOKALAEMIA [None]
  - NAUSEA [None]
  - VOMITING [None]
